FAERS Safety Report 15148408 (Version 1)
Quarter: 2018Q3

REPORT INFORMATION
  Report Type: Spontaneous
  Country: US (occurrence: US)
  Receive Date: 20180716
  Receipt Date: 20180716
  Transmission Date: 20181010
  Serious: No
  Sender: FDA-Public Use
  Company Number: US-SHIRE-US201825305

PATIENT
  Sex: Female
  Weight: 51.7 kg

DRUGS (1)
  1. XIIDRA [Suspect]
     Active Substance: LIFITEGRAST
     Indication: PRODUCT USED FOR UNKNOWN INDICATION
     Dosage: 1 GTT BOTH EYES, 2X/DAY:BID
     Route: 047
     Dates: start: 2017, end: 201804

REACTIONS (4)
  - Instillation site pain [Unknown]
  - Instillation site reaction [Unknown]
  - Eye disorder [Unknown]
  - General physical condition abnormal [Unknown]

NARRATIVE: CASE EVENT DATE: 201805
